FAERS Safety Report 8864371 (Version 1)
Quarter: 2012Q4

REPORT INFORMATION
  Report Type: 
  Country: US (occurrence: US)
  Receive Date: 20121024
  Receipt Date: 20121024
  Transmission Date: 20130627
  Serious: No
  Sender: FDA-Public Use
  Company Number: US-AMGEN-USASP2011067244

PATIENT
  Age: 51 Year
  Sex: Female

DRUGS (2)
  1. ENBREL [Suspect]
     Indication: RHEUMATOID ARTHRITIS
     Dosage: 50 mg, qwk
     Dates: start: 20100210
  2. TREXALL [Concomitant]
     Dates: start: 2006

REACTIONS (7)
  - Papule [Not Recovered/Not Resolved]
  - Rheumatoid arthritis [Not Recovered/Not Resolved]
  - Scratch [Recovered/Resolved]
  - Localised infection [Recovered/Resolved]
  - Sinusitis [Recovered/Resolved]
  - Infection [Not Recovered/Not Resolved]
  - Oral herpes [Not Recovered/Not Resolved]
